FAERS Safety Report 4302036-8 (Version None)
Quarter: 2004Q1

REPORT INFORMATION
  Report Type: 
  Country: None (occurrence: None)
  Receive Date: 20040223
  Receipt Date: 20040108
  Transmission Date: 20041129
  Serious: Yes (Disabling)
  Sender: FDA-Public Use
  Company Number: FR-ROCHE-355362

PATIENT
  Age: 34 Year
  Sex: Male

DRUGS (5)
  1. KYTRIL [Suspect]
     Indication: DRUG USE FOR UNKNOWN INDICATION
     Dosage: ONE VIAL GIVEN DAILY ON DAYS 1 - 5 OF CYCLIC THERAPY.
     Route: 042
     Dates: start: 19991116, end: 19991231
  2. BLEOMYCIN [Suspect]
     Indication: GERM CELL CANCER
     Dosage: INTERMITTENT THERAPY GIVEN ON DAYS 1, 7 AND 15.
     Route: 042
     Dates: start: 19991116, end: 19991231
  3. SOLU-MEDROL [Suspect]
     Indication: DRUG USE FOR UNKNOWN INDICATION
     Dosage: INTERMITTENT THERAPY GIVEN FROM DAY 1 -5.
     Route: 042
     Dates: start: 19991116, end: 19991231
  4. VEPESID [Suspect]
     Indication: GERM CELL CANCER
     Dosage: GIVEN DAILY FROM DAY 1 - 5.
     Route: 042
     Dates: start: 19991116, end: 19991231
  5. CISPLATIN [Suspect]
     Indication: GERM CELL CANCER
     Dosage: GIVEN ON DAYS 1- 5.
     Route: 042
     Dates: start: 19991116, end: 19991231

REACTIONS (1)
  - OSTEONECROSIS [None]
